FAERS Safety Report 6612147-X (Version None)
Quarter: 2010Q1

REPORT INFORMATION
  Report Type: 
  Country: None (occurrence: None)
  Receive Date: 20100302
  Receipt Date: 20100302
  Transmission Date: 20100710
  Serious: Yes (Life-Threatening, Other)
  Sender: FDA-Public Use
  Company Number: None

PATIENT
  Sex: Female
  Weight: 84.8226 kg

DRUGS (2)
  1. IMPLANON [Suspect]
     Indication: CONTRACEPTION
     Dosage: 60 TO 70 MCG DAY ID
     Route: 026
     Dates: start: 20091026, end: 20100202
  2. IMPLANON [Suspect]

REACTIONS (8)
  - AGGRESSION [None]
  - CONDITION AGGRAVATED [None]
  - FUNGAL INFECTION [None]
  - HORMONE LEVEL ABNORMAL [None]
  - MOOD SWINGS [None]
  - NEPHROLITHIASIS [None]
  - PSYCHOTIC DISORDER [None]
  - SUICIDAL IDEATION [None]
